FAERS Safety Report 10467652 (Version 2)
Quarter: 2014Q4

REPORT INFORMATION
  Report Type: Spontaneous
  Country: US (occurrence: US)
  Receive Date: 20140922
  Receipt Date: 20141003
  Transmission Date: 20150528
  Serious: Yes (Other)
  Sender: FDA-Public Use
  Company Number: US-GLAXOSMITHKLINE-A1090143A

PATIENT
  Age: 58 Year
  Sex: Female

DRUGS (8)
  1. TYKERB [Suspect]
     Active Substance: LAPATINIB DITOSYLATE
     Indication: BREAST CANCER
     Dosage: 1250MG PER DAY
     Route: 048
     Dates: start: 20140905
  2. FISH OIL [Concomitant]
     Active Substance: FISH OIL
  3. LETROZOLE. [Concomitant]
     Active Substance: LETROZOLE
  4. ZANTAC [Concomitant]
     Active Substance: RANITIDINE HYDROCHLORIDE
  5. MULTIVITAMIN [Concomitant]
     Active Substance: VITAMINS
  6. HERCEPTIN [Concomitant]
     Active Substance: TRASTUZUMAB
  7. CALCIUM [Concomitant]
     Active Substance: CALCIUM
  8. HYDROCODONE, ACETAMINOPHEN [Concomitant]
     Active Substance: ACETAMINOPHEN\HYDROCODONE BITARTRATE

REACTIONS (2)
  - Epistaxis [Unknown]
  - Rectal haemorrhage [Unknown]
